FAERS Safety Report 9850905 (Version 2)
Quarter: 2014Q1

REPORT INFORMATION
  Report Type: Spontaneous
  Country: US (occurrence: US)
  Receive Date: 20140128
  Receipt Date: 20140320
  Transmission Date: 20141002
  Serious: Yes (Death, Life-Threatening, Hospitalization, Disabling, Other)
  Sender: FDA-Public Use
  Company Number: US-MERCK-1401USA012753

PATIENT
  Sex: Male
  Weight: 78.91 kg

DRUGS (5)
  1. JANUVIA [Suspect]
     Indication: TYPE 2 DIABETES MELLITUS
     Dosage: 100 MG, UNK
     Route: 048
     Dates: start: 20120711, end: 201212
  2. METFORMIN [Concomitant]
     Indication: TYPE 2 DIABETES MELLITUS
     Dosage: 1000 MG, BID
     Route: 048
  3. GLIPIZIDE [Concomitant]
     Indication: TYPE 2 DIABETES MELLITUS
     Dosage: 5 MG, BID
     Route: 048
  4. PREDNISONE [Concomitant]
     Indication: CHRONIC OBSTRUCTIVE PULMONARY DISEASE
     Dosage: 20 MG, UNK
     Route: 048
     Dates: start: 20120427, end: 20120905
  5. MECLIZINE [Concomitant]
     Indication: DIZZINESS
     Dosage: 25 MG, UNK
     Route: 048
     Dates: start: 20111021

REACTIONS (18)
  - Adenocarcinoma pancreas [Fatal]
  - Pancreatitis [Unknown]
  - Pancreatic stent placement [Unknown]
  - Gastrooesophageal reflux disease [Unknown]
  - Infective exacerbation of chronic obstructive airways disease [Unknown]
  - Lumbar radiculopathy [Unknown]
  - Osteoarthritis [Unknown]
  - Psoriasis [Unknown]
  - Spinal osteoarthritis [Unknown]
  - Hypercholesterolaemia [Unknown]
  - Mitral valve incompetence [Unknown]
  - Eczema asteatotic [Unknown]
  - Sleep apnoea syndrome [Unknown]
  - Asthma [Unknown]
  - Cyst removal [Unknown]
  - Bifascicular block [Unknown]
  - Ascites [Unknown]
  - Cough [Unknown]
